FAERS Safety Report 14544629 (Version 5)
Quarter: 2018Q2

REPORT INFORMATION
  Report Type: Spontaneous
  Country: FR (occurrence: FR)
  Receive Date: 20180217
  Receipt Date: 20180517
  Transmission Date: 20180711
  Serious: Yes (Hospitalization, Other)
  Sender: FDA-Public Use
  Company Number: FR-AUROBINDO-AUR-APL-2017-40885

PATIENT
  Age: 27 Year
  Sex: Male

DRUGS (9)
  1. TRAMADOL. [Suspect]
     Active Substance: TRAMADOL
     Indication: HEAD INJURY
     Dosage: UNK
     Route: 065
  2. TRAMADOL. [Suspect]
     Active Substance: TRAMADOL
     Indication: HEAD INJURY
     Dosage: UNK ()
     Route: 065
  3. TRAMADOL. [Suspect]
     Active Substance: TRAMADOL
     Dosage: ()
     Route: 065
  4. TRAMADOL. [Suspect]
     Active Substance: TRAMADOL
     Dosage: ()
     Route: 065
  5. TRAMADOL. [Suspect]
     Active Substance: TRAMADOL
     Dosage: ()
     Route: 065
  6. TRAMADOL. [Suspect]
     Active Substance: TRAMADOL
     Dosage: ()
     Route: 065
  7. PARACETAMOL TABLET [Suspect]
     Active Substance: ACETAMINOPHEN
     Indication: HEAD INJURY
     Dosage: 2 G, UNK
     Route: 065
  8. TRAMADOL. [Suspect]
     Active Substance: TRAMADOL
     Indication: CRANIOCEREBRAL INJURY
     Dosage: ()
  9. PARACETAMOL TABLET [Suspect]
     Active Substance: ACETAMINOPHEN
     Indication: CRANIOCEREBRAL INJURY
     Dosage: ()

REACTIONS (4)
  - Mixed liver injury [Unknown]
  - Hepatic necrosis [Unknown]
  - Cholestasis [Unknown]
  - Drug-induced liver injury [Unknown]
